FAERS Safety Report 9076875 (Version 4)
Quarter: 2013Q2

REPORT INFORMATION
  Report Type: Report from Study
  Country: GR (occurrence: GR)
  Receive Date: 20130130
  Receipt Date: 20130603
  Transmission Date: 20140414
  Serious: Yes (Death, Life-Threatening, Hospitalization, Other)
  Sender: FDA-Public Use
  Company Number: GR-BRISTOL-MYERS SQUIBB COMPANY-17309006

PATIENT
  Age: 75 Year
  Sex: Female
  Weight: 80 kg

DRUGS (13)
  1. PACLITAXEL [Suspect]
     Indication: OVARIAN CANCER
     Dosage: LAST DOSE:22AUG2011
     Route: 042
     Dates: start: 20110715
  2. CARBOPLATIN [Suspect]
     Indication: OVARIAN CANCER
     Dosage: LAST DOSE PRIOR TO SAE:22AUG11
     Route: 042
     Dates: start: 20110715
  3. BEVACIZUMAB [Suspect]
     Indication: OVARIAN CANCER
     Route: 042
     Dates: start: 20110822
  4. DIGITALIS [Concomitant]
     Dates: start: 2006
  5. NICOUMALONE [Concomitant]
     Route: 048
     Dates: start: 2006
  6. EPOETIN BETA [Concomitant]
     Route: 042
     Dates: start: 201104
  7. FUROSEMIDE [Concomitant]
     Route: 048
     Dates: start: 2006
  8. NYSTATIN [Concomitant]
     Route: 048
     Dates: start: 20110822
  9. SPIRONOLACTONE [Concomitant]
     Route: 048
     Dates: start: 200612
  10. DIGOXINE [Concomitant]
     Route: 048
  11. ALLOPURINOL [Concomitant]
     Route: 048
     Dates: start: 20110716
  12. ACENOCOUMAROL [Concomitant]
     Dates: start: 2006
  13. CEFTAZIDIME [Concomitant]
     Dates: start: 20110429

REACTIONS (3)
  - Septic shock [Fatal]
  - Febrile neutropenia [Fatal]
  - Respiratory tract infection [Unknown]
